FAERS Safety Report 4390167-6 (Version None)
Quarter: 2004Q3

REPORT INFORMATION
  Report Type: 
  Country: None (occurrence: None)
  Receive Date: 20040706
  Receipt Date: 20040513
  Transmission Date: 20050211
  Serious: Yes (Hospitalization)
  Sender: FDA-Public Use
  Company Number: JP-GLAXOSMITHKLINE-B0332707A

PATIENT
  Age: 49 Year
  Sex: Female
  Weight: 43 kg

DRUGS (2)
  1. CEFAZOLIN [Suspect]
     Indication: INFECTION PROPHYLAXIS
     Dosage: 1G TWICE PER DAY
     Route: 042
     Dates: start: 20040413, end: 20040414
  2. VOLTAREN [Suspect]
     Indication: ANALGESIC EFFECT
     Dosage: 50MG UNKNOWN
     Route: 054
     Dates: start: 20040414, end: 20040414

REACTIONS (5)
  - EXANTHEM [None]
  - GENERALISED OEDEMA [None]
  - PRURITUS GENERALISED [None]
  - RASH [None]
  - SWELLING FACE [None]
